FAERS Safety Report 23487214 (Version 4)
Quarter: 2024Q4

REPORT INFORMATION
  Report Type: Spontaneous
  Country: US (occurrence: US)
  Receive Date: 20240206
  Receipt Date: 20241002
  Transmission Date: 20250114
  Serious: No
  Sender: LUNDBECK
  Company Number: US-LUNDBECK-DKLU3072243

PATIENT

DRUGS (2)
  1. NORTHERA [Suspect]
     Active Substance: DROXIDOPA
     Indication: Carcinoid tumour
     Dosage: 400 MILLIGRAM
     Route: 048
     Dates: start: 20221123
  2. NORTHERA [Suspect]
     Active Substance: DROXIDOPA
     Dosage: 300 MILLIGRAM
     Route: 048
     Dates: start: 20230413

REACTIONS (3)
  - Hypertension [Not Recovered/Not Resolved]
  - Off label use [Unknown]
  - Blood pressure fluctuation [Not Recovered/Not Resolved]
